FAERS Safety Report 4385878-2 (Version None)
Quarter: 2004Q2

REPORT INFORMATION
  Report Type: 
  Country: None (occurrence: None)
  Receive Date: 20040628
  Receipt Date: 20030121
  Transmission Date: 20050107
  Serious: Yes (Death, Hospitalization)
  Sender: FDA-Public Use
  Company Number: SE-GLAXOSMITHKLINE-B0290460A

PATIENT
  Age: 81 Year
  Sex: Female

DRUGS (3)
  1. LEUKERAN [Suspect]
     Dosage: 10MG PER DAY
     Route: 048
     Dates: start: 20021004, end: 20021115
  2. OVESTERIN [Concomitant]
     Route: 065
  3. ANERVAN [Concomitant]
     Route: 065

REACTIONS (1)
  - MYOCARDITIS [None]
